FAERS Safety Report 4800107-0 (Version None)
Quarter: 2005Q4

REPORT INFORMATION
  Report Type: 
  Country: None (occurrence: None)
  Receive Date: 20051017
  Receipt Date: 20050916
  Transmission Date: 20060501
  Serious: Yes (Hospitalization)
  Sender: FDA-Public Use
  Company Number: US-GLAXOSMITHKLINE-A0574543A

PATIENT
  Age: 49 Year
  Sex: Male

DRUGS (7)
  1. TRIZIVIR [Suspect]
     Indication: HIV INFECTION
     Dosage: 1TAB TWICE PER DAY
     Route: 048
     Dates: start: 20040101, end: 20051010
  2. COMBIVIR [Suspect]
     Indication: HIV INFECTION
  3. CRIXIVAN [Suspect]
     Indication: HIV INFECTION
  4. CARDIZEM [Concomitant]
  5. INDERAL [Concomitant]
  6. ATIVAN [Concomitant]
  7. UNKNOWN DRUG FOR ANXIETY [Concomitant]
     Indication: ANXIETY

REACTIONS (17)
  - ABDOMINAL PAIN [None]
  - ANXIETY [None]
  - ASTHENIA [None]
  - ATRIAL FIBRILLATION [None]
  - CHEST PAIN [None]
  - COUGH [None]
  - DIARRHOEA [None]
  - DISABILITY [None]
  - DRUG INEFFECTIVE [None]
  - DYSPNOEA [None]
  - HEART RATE INCREASED [None]
  - HEART RATE IRREGULAR [None]
  - HYPERSENSITIVITY [None]
  - INFLUENZA LIKE ILLNESS [None]
  - NAUSEA [None]
  - PHARYNGOLARYNGEAL PAIN [None]
  - VOMITING [None]
